FAERS Safety Report 19246148 (Version 1)
Quarter: 2021Q2

REPORT INFORMATION
  Report Type: Spontaneous
  Country: US (occurrence: US)
  Receive Date: 20210511
  Receipt Date: 20210511
  Transmission Date: 20210717
  Serious: Yes (Death)
  Sender: FDA-Public Use
  Company Number: None

PATIENT
  Age: 70 Year
  Sex: Male
  Weight: 84.15 kg

DRUGS (16)
  1. ALBUTEROL HFA [Concomitant]
     Active Substance: ALBUTEROL SULFATE
  2. CELEBREX [Concomitant]
     Active Substance: CELECOXIB
  3. COMBIVENT [Concomitant]
     Active Substance: ALBUTEROL SULFATE\IPRATROPIUM BROMIDE
  4. GABAPENTIN. [Concomitant]
     Active Substance: GABAPENTIN
  5. LEUCOVORIN. [Concomitant]
     Active Substance: LEUCOVORIN
  6. SIMVASTATIN. [Concomitant]
     Active Substance: SIMVASTATIN
  7. METHOTREXATE. [Concomitant]
     Active Substance: METHOTREXATE
  8. ABIRATERONE. [Suspect]
     Active Substance: ABIRATERONE ACETATE
     Indication: PROSTATE CANCER
     Route: 048
     Dates: start: 20160817
  9. KEPPRA [Concomitant]
     Active Substance: LEVETIRACETAM
  10. ATENOLOL. [Concomitant]
     Active Substance: ATENOLOL
  11. METHYLPHENIDATE. [Concomitant]
     Active Substance: METHYLPHENIDATE
  12. PAXIL [Concomitant]
     Active Substance: PAROXETINE HYDROCHLORIDE
  13. PREDNISONE. [Concomitant]
     Active Substance: PREDNISONE
  14. ACETAMINOPHEN. [Concomitant]
     Active Substance: ACETAMINOPHEN
  15. FENOFIBRATE. [Concomitant]
     Active Substance: FENOFIBRATE
  16. IPRATROPIUM?ALBUTEROL [Concomitant]
     Active Substance: ALBUTEROL\IPRATROPIUM

REACTIONS (1)
  - Death [None]

NARRATIVE: CASE EVENT DATE: 20210511
